FAERS Safety Report 23703034 (Version 1)
Quarter: 2024Q2

REPORT INFORMATION
  Report Type: Spontaneous
  Country: US (occurrence: US)
  Receive Date: 20240403
  Receipt Date: 20240403
  Transmission Date: 20240716
  Serious: No
  Sender: FDA-Public Use
  Company Number: US-AGEPHA PHARMA FZ LLC-AGP202403-000003

PATIENT
  Age: 64 Year
  Sex: Male

DRUGS (1)
  1. LODOCO [Suspect]
     Active Substance: COLCHICINE
     Indication: Product used for unknown indication
     Dosage: 0.5 MILLIGRAM (1 TABLET), DAILY
     Route: 048
     Dates: end: 20240312

REACTIONS (2)
  - Joint swelling [Unknown]
  - Diarrhoea [Unknown]
